FAERS Safety Report 18387804 (Version 1)
Quarter: 2020Q4

REPORT INFORMATION
  Report Type: Spontaneous
  Country: KR (occurrence: KR)
  Receive Date: 20201015
  Receipt Date: 20201015
  Transmission Date: 20210114
  Serious: Yes (Other)
  Sender: FDA-Public Use
  Company Number: KR-AMGEN-KORSP2020164561

PATIENT
  Sex: Male

DRUGS (1)
  1. XGEVA [Suspect]
     Active Substance: DENOSUMAB
     Indication: METASTASES TO BONE
     Dosage: UNK
     Route: 065
     Dates: end: 202002

REACTIONS (3)
  - Prostate cancer metastatic [Unknown]
  - Gingival disorder [Unknown]
  - Tooth disorder [Unknown]

NARRATIVE: CASE EVENT DATE: 202009
